FAERS Safety Report 4268785-5 (Version None)
Quarter: 2004Q1

REPORT INFORMATION
  Report Type: 
  Country: None (occurrence: None)
  Receive Date: 20040112
  Receipt Date: 20040112
  Transmission Date: 20041129
  Serious: Yes (Disabling)
  Sender: FDA-Public Use
  Company Number: None

PATIENT
  Age: 36 Year
  Sex: Female
  Weight: 55.7924 kg

DRUGS (1)
  1. PAXIL [Suspect]
     Dosage: 20 MG ONCE A DAY ORAL
     Route: 048
     Dates: start: 20000805, end: 20040109

REACTIONS (5)
  - AGGRESSION [None]
  - DRUG WITHDRAWAL SYNDROME [None]
  - MIGRAINE [None]
  - PYREXIA [None]
  - SOMNOLENCE [None]
